FAERS Safety Report 6135389-9 (Version None)
Quarter: 2009Q1

REPORT INFORMATION
  Report Type: 
  Country: None (occurrence: None)
  Receive Date: 20090327
  Receipt Date: 20090324
  Transmission Date: 20090719
  Serious: Yes (Hospitalization)
  Sender: FDA-Public Use
  Company Number: DE-GILEAD-2009-0020369

PATIENT
  Sex: Male
  Weight: 69 kg

DRUGS (1)
  1. VIREAD [Suspect]
     Indication: HEPATITIS B
     Route: 048
     Dates: start: 20090128

REACTIONS (2)
  - BLOOD PHOSPHORUS INCREASED [None]
  - PERICARDIAL EFFUSION [None]
